FAERS Safety Report 4880009-4 (Version None)
Quarter: 2006Q1

REPORT INFORMATION
  Report Type: 
  Country: None (occurrence: None)
  Receive Date: 20060113
  Receipt Date: 20051118
  Transmission Date: 20060701
  Serious: Yes (Hospitalization)
  Sender: FDA-Public Use
  Company Number: US-KINGPHARMUSA00001-K200501501

PATIENT
  Age: 58 Year
  Sex: Male

DRUGS (9)
  1. ALTACE [Suspect]
     Indication: HYPERTENSION
     Dosage: 2.5 MG, QD
     Dates: start: 20010515, end: 20050905
  2. DAONIL [Suspect]
     Indication: DIABETES MELLITUS NON-INSULIN-DEPENDENT
     Dosage: 5 MG, QD
     Route: 048
     Dates: end: 20050905
  3. LIPANTHYL ^BRISTOL-MYERS SQUIBB^ [Suspect]
     Indication: HYPERCHOLESTEROLAEMIA
     Dosage: 160 MG, QD
     Route: 048
     Dates: start: 20000101, end: 20050909
  4. NOCTRAN 10 [Suspect]
     Indication: INSOMNIA
     Dosage: 5 MG, QD
     Route: 048
     Dates: end: 20050905
  5. BUMETANIDE [Suspect]
     Dosage: 5 MG, QD
     Route: 048
     Dates: start: 20050615, end: 20050830
  6. IKOREL [Concomitant]
  7. VASTAREL ^BIOPHARMA^ [Concomitant]
  8. DICETEL [Concomitant]
  9. SOTALOL HCL [Concomitant]

REACTIONS (5)
  - ANAEMIA MACROCYTIC [None]
  - DYSPNOEA [None]
  - MYELODYSPLASTIC SYNDROME [None]
  - TACHYCARDIA [None]
  - THROMBOCYTOPENIA [None]
